FAERS Safety Report 14861429 (Version 1)
Quarter: 2018Q2

REPORT INFORMATION
  Report Type: Spontaneous
  Country: US (occurrence: US)
  Receive Date: 20180508
  Receipt Date: 20180508
  Transmission Date: 20180711
  Serious: Yes (Hospitalization, Other)
  Sender: FDA-Public Use
  Company Number: US-PFIZER INC-2018182806

PATIENT
  Age: 45 Year
  Sex: Female

DRUGS (1)
  1. GABAPENTIN. [Suspect]
     Active Substance: GABAPENTIN
     Indication: NEUROPATHY PERIPHERAL
     Dosage: 300 MG CAPSULE TAKES IT 3 TIMES A DAY
     Route: 048

REACTIONS (18)
  - Dysphonia [Unknown]
  - Intentional product use issue [Unknown]
  - Paraesthesia [Unknown]
  - Fine motor skill dysfunction [Unknown]
  - Tooth socket haemorrhage [Unknown]
  - Swelling [Unknown]
  - Speech disorder [Unknown]
  - Central nervous system lesion [Unknown]
  - Drug effect incomplete [Unknown]
  - Gait disturbance [Unknown]
  - Depression [Not Recovered/Not Resolved]
  - Throat tightness [Unknown]
  - Fall [Unknown]
  - Somnolence [Not Recovered/Not Resolved]
  - Product use in unapproved indication [Unknown]
  - Thyroid cancer [Unknown]
  - Memory impairment [Not Recovered/Not Resolved]
  - Weight fluctuation [Unknown]

NARRATIVE: CASE EVENT DATE: 2015
